FAERS Safety Report 4977367-9 (Version None)
Quarter: 2006Q2

REPORT INFORMATION
  Report Type: 
  Country: None (occurrence: None)
  Receive Date: 20060419
  Receipt Date: 20051107
  Transmission Date: 20061013
  Serious: Yes (Death, Hospitalization, Disabling)
  Sender: FDA-Public Use
  Company Number: US-MERCK-0511USA01393

PATIENT
  Age: 81 Year
  Sex: Female
  Weight: 67 kg

DRUGS (7)
  1. VIOXX [Suspect]
     Indication: ARTHRITIS
     Route: 048
     Dates: start: 20000823, end: 20020101
  2. ISORDIL [Concomitant]
     Route: 065
  3. LASIX [Concomitant]
     Route: 065
  4. NORVASC [Concomitant]
     Route: 065
  5. TYLENOL W/ CODEINE NO. 3 [Concomitant]
     Route: 065
  6. PREDNISONE [Concomitant]
     Route: 065
  7. ULTRAM [Concomitant]
     Route: 065

REACTIONS (11)
  - CARDIAC ARREST [None]
  - CARDIAC DISORDER [None]
  - CARDIOVASCULAR DISORDER [None]
  - CEREBROVASCULAR ACCIDENT [None]
  - DEATH [None]
  - DEEP VEIN THROMBOSIS [None]
  - HYPERTENSION [None]
  - LOSS OF CONSCIOUSNESS [None]
  - MYOCARDIAL INFARCTION [None]
  - RESPIRATORY FAILURE [None]
  - TRACHEOSTOMY [None]
